FAERS Safety Report 4749061-0 (Version None)
Quarter: 2005Q3

REPORT INFORMATION
  Report Type: 
  Country: None (occurrence: None)
  Receive Date: 20050812
  Receipt Date: 20050622
  Transmission Date: 20060218
  Serious: Yes (Other)
  Sender: FDA-Public Use
  Company Number: 394086

PATIENT
  Age: 45 Year
  Sex: Female
  Weight: 73.5 kg

DRUGS (3)
  1. PEGASYS [Suspect]
     Indication: HEPATITIS C
     Dates: start: 20030815, end: 20040115
  2. PEG-INTRON [Suspect]
     Indication: HEPATITIS C
     Dosage: 120 MCG 1 PER WEEK SUBCUTANEOUS
     Route: 058
     Dates: start: 20021004, end: 20030815
  3. REBETOL [Suspect]
     Indication: HEPATITIS C
     Dosage: 1000 MG DAILY ORAL
     Route: 048
     Dates: start: 20021004, end: 20030815

REACTIONS (2)
  - DRUG INEFFECTIVE [None]
  - SARCOIDOSIS [None]
